FAERS Safety Report 4866087-7 (Version None)
Quarter: 2005Q4

REPORT INFORMATION
  Report Type: 
  Country: None (occurrence: None)
  Receive Date: 20051221
  Receipt Date: 20051207
  Transmission Date: 20060501
  Serious: Yes (Hospitalization)
  Sender: FDA-Public Use
  Company Number: 2005BI022010

PATIENT
  Sex: Male

DRUGS (7)
  1. ZEVALIN [Suspect]
     Indication: B-CELL LYMPHOMA
     Dosage: 5.0 MCI; 1X; IV
     Route: 042
     Dates: start: 20050921, end: 20050921
  2. ZEVALIN [Suspect]
     Indication: B-CELL LYMPHOMA
     Dosage: 26.8 MCI; 1X; IV
     Route: 042
     Dates: start: 20050928, end: 20050928
  3. RITUXIMAB [Concomitant]
  4. BCNU [Concomitant]
  5. VP-16 [Concomitant]
  6. CYTARABINE [Concomitant]
  7. MELPHALAN [Concomitant]

REACTIONS (6)
  - CARDIAC MURMUR [None]
  - COUGH [None]
  - HEART RATE INCREASED [None]
  - PYREXIA [None]
  - STEM CELL TRANSPLANT [None]
  - TACHYCARDIA [None]
